FAERS Safety Report 8572726-X (Version None)
Quarter: 2012Q3

REPORT INFORMATION
  Report Type: 
  Country: None (occurrence: None)
  Receive Date: 20120806
  Receipt Date: 20120801
  Transmission Date: 20120928
  Serious: Yes (Other)
  Sender: FDA-Public Use
  Company Number: US-PFIZER INC-2012186889

PATIENT
  Age: 64 Year
  Sex: Female
  Weight: 88.435 kg

DRUGS (17)
  1. BETASERON [Concomitant]
     Dosage: UNK
  2. CALCIUM+ VITAMIN D [Concomitant]
     Dosage: UNK
  3. CARBAMAZEPINE [Concomitant]
     Dosage: UNK
  4. ALENDRONATE SODIUM [Concomitant]
     Dosage: UNK
  5. SERTRALINE [Concomitant]
     Dosage: UNK
  6. SOLU-MEDROL [Suspect]
     Indication: MULTIPLE SCLEROSIS
     Dosage: 750 MG, UNK
  7. FUROSEMIDE [Concomitant]
     Dosage: UNK
  8. LEVOTHYROXINE [Concomitant]
     Dosage: UNK
  9. GABAPENTIN [Concomitant]
     Dosage: UNK
  10. TIZANIDINE [Concomitant]
     Dosage: UNK
  11. IMODIUM [Concomitant]
     Dosage: UNK
  12. AMPYRA [Suspect]
     Indication: GAIT DISTURBANCE
     Dosage: 10 MG, 2X/DAY
     Route: 048
     Dates: start: 20110701, end: 20120101
  13. ASPIRIN [Concomitant]
     Dosage: UNK
  14. KLOR-CON [Concomitant]
     Dosage: UNK
  15. DONEPEZIL [Concomitant]
     Dosage: UNK
  16. ASCORBIC ACID [Concomitant]
     Dosage: UNK
  17. SPIRONOLACTONE [Concomitant]
     Dosage: UNK

REACTIONS (2)
  - MULTIPLE SCLEROSIS RELAPSE [None]
  - INSOMNIA [None]
